FAERS Safety Report 12915646 (Version 2)
Quarter: 2017Q1

REPORT INFORMATION
  Report Type: Spontaneous
  Country: US (occurrence: US)
  Receive Date: 20161106
  Receipt Date: 20170216
  Transmission Date: 20170428
  Serious: No
  Sender: FDA-Public Use
  Company Number: US-RELYPSA-RLY2016003131

PATIENT
  Age: 89 Year
  Sex: Male

DRUGS (21)
  1. VELTASSA [Suspect]
     Active Substance: PATIROMER
     Dosage: 16.8 G, QD
     Route: 048
  2. SYMBICORT [Concomitant]
     Active Substance: BUDESONIDE\FORMOTEROL FUMARATE DIHYDRATE
  3. HYDROCODONE BITARTRATE AND ACETAMINOPHEN [Concomitant]
     Active Substance: ACETAMINOPHEN\HYDROCODONE BITARTRATE
  4. SULFAMETHOXAZOLE\TRIMETHOPRIM [Concomitant]
     Active Substance: SULFAMETHOXAZOLE\TRIMETHOPRIM
  5. AMITIZA [Concomitant]
     Active Substance: LUBIPROSTONE
  6. LISINOPRIL. [Concomitant]
     Active Substance: LISINOPRIL
  7. VELTASSA [Suspect]
     Active Substance: PATIROMER
     Indication: HYPERKALAEMIA
     Dosage: 8.4 G, QD
     Route: 048
     Dates: start: 20161010
  8. ZOLOFT [Concomitant]
     Active Substance: SERTRALINE HYDROCHLORIDE
  9. MIRTAZAPINE. [Concomitant]
     Active Substance: MIRTAZAPINE
  10. DILTIAZEM. [Concomitant]
     Active Substance: DILTIAZEM
  11. TEMAZEPAM. [Concomitant]
     Active Substance: TEMAZEPAM
  12. BUMETANIDE. [Concomitant]
     Active Substance: BUMETANIDE
  13. PREDNISONE. [Concomitant]
     Active Substance: PREDNISONE
  14. TAMSULOSIN [Concomitant]
     Active Substance: TAMSULOSIN
     Indication: PROSTATE EXAMINATION ABNORMAL
  15. LORAZEPAM. [Concomitant]
     Active Substance: LORAZEPAM
  16. POLYETHYLENE [Concomitant]
     Active Substance: HIGH DENSITY POLYETHYLENE
  17. REMERON [Concomitant]
     Active Substance: MIRTAZAPINE
     Indication: DEPRESSION
  18. DIAZEPAM. [Concomitant]
     Active Substance: DIAZEPAM
  19. FAMOTIDINE. [Concomitant]
     Active Substance: FAMOTIDINE
  20. AMOXICILLIN AND CLAVULANATE POTASSIUM [Concomitant]
     Active Substance: AMOXICILLIN\CLAVULANATE POTASSIUM
  21. LEVOFLOXACIN. [Concomitant]
     Active Substance: LEVOFLOXACIN

REACTIONS (3)
  - Nausea [Recovered/Resolved]
  - Drug administration error [Recovered/Resolved]
  - Constipation [Recovered/Resolved]

NARRATIVE: CASE EVENT DATE: 201610
